FAERS Safety Report 4674657-4 (Version None)
Quarter: 2005Q2

REPORT INFORMATION
  Report Type: 
  Country: None (occurrence: None)
  Receive Date: 20050526
  Receipt Date: 20050525
  Transmission Date: 20051028
  Serious: Yes (Hospitalization, Other)
  Sender: FDA-Public Use
  Company Number: US-GLAXOSMITHKLINE-A0560122A

PATIENT
  Sex: Male

DRUGS (2)
  1. AVANDIA [Suspect]
     Dosage: 8MG PER DAY
     Route: 048
     Dates: end: 20050101
  2. LOTREL [Suspect]
     Indication: DRUG USE FOR UNKNOWN INDICATION
     Route: 065

REACTIONS (5)
  - CARDIAC FAILURE [None]
  - DRUG INTERACTION [None]
  - DYSPNOEA [None]
  - FLUID RETENTION [None]
  - OEDEMA PERIPHERAL [None]
